FAERS Safety Report 8046023 (Version 11)
Quarter: 2014Q3

REPORT INFORMATION
  Report Type: Spontaneous
  Country: US (occurrence: US)
  Receive Date: 20110720
  Receipt Date: 20140930
  Transmission Date: 20150326
  Serious: Yes (Other)
  Sender: FDA-Public Use
  Company Number: US-JNJFOC-2011000092

PATIENT
  Age: 53 Year
  Sex: Female
  Weight: 65.77 kg

DRUGS (4)
  1. VITAMIN D [Concomitant]
     Active Substance: CHOLECALCIFEROL
     Route: 065
  2. UNSPECIFIED HERBAL SUPPLEMENTS [Concomitant]
     Route: 065
  3. ZYRTEC [Suspect]
     Active Substance: CETIRIZINE HYDROCHLORIDE
     Indication: NASOPHARYNGITIS
     Dosage: DAILY DOSE TEXT: 10MG
     Route: 048
     Dates: start: 20101225, end: 20101229
  4. ZYRTEC [Suspect]
     Active Substance: CETIRIZINE HYDROCHLORIDE
     Indication: HYPERSENSITIVITY
     Dosage: DAILY DOSE TEXT: 10MG
     Route: 048
     Dates: start: 20101225, end: 20101229

REACTIONS (8)
  - Syncope [Recovered/Resolved]
  - Jaw fracture [Unknown]
  - Rib fracture [Unknown]
  - Contusion [Recovered/Resolved]
  - Tooth fracture [Recovering/Resolving]
  - Injury [Unknown]
  - Drug hypersensitivity [Unknown]
  - Pain [Recovered/Resolved]

NARRATIVE: CASE EVENT DATE: 20101226
